FAERS Safety Report 19215172 (Version 1)
Quarter: 2021Q2

REPORT INFORMATION
  Report Type: Spontaneous
  Country: US (occurrence: US)
  Receive Date: 20210505
  Receipt Date: 20210505
  Transmission Date: 20210717
  Serious: No
  Sender: FDA-Public Use
  Company Number: US-CIPLA LTD.-2021US01058

PATIENT

DRUGS (6)
  1. SALBUTAMOL [Suspect]
     Active Substance: ALBUTEROL
     Indication: DYSPNOEA
     Dosage: 0.09 MILLIGRAM (TOOK TWO PUFFS)
     Dates: start: 20210210
  2. VITAMIN D3 [Concomitant]
     Active Substance: CHOLECALCIFEROL
     Indication: VITAMIN SUPPLEMENTATION
     Dosage: UNK UNK, QD (ONCE A DAY; HILLESTED PHARMACY)
     Route: 065
     Dates: start: 20210201
  3. LITHIUM CARBONATE. [Concomitant]
     Active Substance: LITHIUM CARBONATE
     Indication: BIPOLAR DISORDER
     Dosage: 3 DOSAGE FORM, QD (3 TABLETS AT NIGHT; SUN PHARMACEUTICALS)
     Route: 065
     Dates: start: 20210201
  4. LEXAPRO [Concomitant]
     Active Substance: ESCITALOPRAM OXALATE
     Indication: DEPRESSION
     Dosage: UNK, QD (ONCE A DAY; AUROBINDO PHARMACEUTICALS)
     Route: 065
     Dates: start: 20210201
  5. DULERA [Concomitant]
     Active Substance: FORMOTEROL FUMARATE DIHYDRATE\MOMETASONE FUROATE
     Indication: DYSPNOEA
     Dosage: UNK, TWO PUFFS EVERYDAY
     Route: 065
  6. IBUPROFEN. [Concomitant]
     Active Substance: IBUPROFEN
     Indication: FOOT DEFORMITY
     Dosage: UNK, BID (TWICE A DAY, AMNEAL PHARMACY)
     Route: 065
     Dates: start: 20210201

REACTIONS (8)
  - Device malfunction [Unknown]
  - Malaise [Unknown]
  - Dyspnoea [Not Recovered/Not Resolved]
  - Chest pain [Not Recovered/Not Resolved]
  - Incorrect dose administered by device [Not Recovered/Not Resolved]
  - Device use confusion [Unknown]
  - Therapeutic product effect incomplete [Not Recovered/Not Resolved]
  - Product container seal issue [Unknown]

NARRATIVE: CASE EVENT DATE: 20210210
